FAERS Safety Report 8319475-0 (Version None)
Quarter: 2012Q2

REPORT INFORMATION
  Report Type: 
  Country: None (occurrence: None)
  Receive Date: 20120427
  Receipt Date: 20120417
  Transmission Date: 20120825
  Serious: Yes (Other)
  Sender: FDA-Public Use
  Company Number: ZA-JNJFOC-20120405005

PATIENT
  Sex: Male

DRUGS (2)
  1. CONCERTA [Suspect]
     Indication: ATTENTION DEFICIT/HYPERACTIVITY DISORDER
     Dosage: 108+MG
     Route: 048
     Dates: start: 20100101
  2. CONCERTA [Suspect]
     Dosage: 2-3 TIMES DAILY
     Route: 048

REACTIONS (7)
  - OVERDOSE [None]
  - POOR PERSONAL HYGIENE [None]
  - AGGRESSION [None]
  - DRUG ABUSE [None]
  - IRRITABILITY [None]
  - APATHY [None]
  - ABNORMAL BEHAVIOUR [None]
